FAERS Safety Report 7903442-2 (Version None)
Quarter: 2011Q4

REPORT INFORMATION
  Report Type: 
  Country: None (occurrence: None)
  Receive Date: 20111107
  Receipt Date: 20111026
  Transmission Date: 20120403
  Serious: Yes (Other)
  Sender: FDA-Public Use
  Company Number: 20110771

PATIENT
  Age: 37 Year
  Sex: Male

DRUGS (2)
  1. HYDROXYZINE HCL [Suspect]
     Indication: ANXIETY
     Dosage: UNK DOSE ONCE
  2. HYDROXYZINE HCL [Suspect]
     Indication: ANXIETY
     Dosage: INTRAVENOUS BOLUS
     Route: 040

REACTIONS (12)
  - PAIN IN EXTREMITY [None]
  - BURNING SENSATION [None]
  - VEIN DISORDER [None]
  - HYPOAESTHESIA [None]
  - DISCOMFORT [None]
  - PARAESTHESIA [None]
  - INFUSION SITE PAIN [None]
  - BALANCE DISORDER [None]
  - JOINT CONTRACTURE [None]
  - OFF LABEL USE [None]
  - FEELING ABNORMAL [None]
  - SKIN DISCOLOURATION [None]
